FAERS Safety Report 8931419 (Version 1)
Quarter: 2012Q4

REPORT INFORMATION
  Report Type: 
  Country: US (occurrence: US)
  Receive Date: 20121128
  Receipt Date: 20121128
  Transmission Date: 20130627
  Serious: No
  Sender: FDA-Public Use
  Company Number: US-TARO-2012P1059494

PATIENT
  Age: 74 Year
  Sex: Female
  Weight: 79.83 kg

DRUGS (5)
  1. TRIAMCINOLONE ACETONIDE [Suspect]
     Route: 061
     Dates: start: 20120822, end: 20120824
  2. TRIAMCINOLONE ACETONIDE [Suspect]
     Route: 061
     Dates: start: 20120824, end: 20120829
  3. CALCIUM [Concomitant]
  4. ASPIRIN [Concomitant]
  5. VITAMIN D [Concomitant]

REACTIONS (2)
  - Stomatitis [Recovered/Resolved]
  - Drug ineffective [Unknown]
